FAERS Safety Report 7024237-0 (Version None)
Quarter: 2010Q4

REPORT INFORMATION
  Report Type: 
  Country: None (occurrence: None)
  Receive Date: 20101001
  Receipt Date: 20100921
  Transmission Date: 20110411
  Serious: Yes (Death, Other)
  Sender: FDA-Public Use
  Company Number: AU-NAPPMUNDI-USA-2010-0045847

PATIENT
  Sex: Female
  Weight: 29 kg

DRUGS (1)
  1. OXYCODONE HCL [Suspect]
     Indication: PRODUCT USED FOR UNKNOWN INDICATION

REACTIONS (3)
  - DEATH [None]
  - DRUG LEVEL INCREASED [None]
  - WRONG TECHNIQUE IN DRUG USAGE PROCESS [None]
